FAERS Safety Report 4763809-0 (Version None)
Quarter: 2005Q3

REPORT INFORMATION
  Report Type: 
  Country: None (occurrence: None)
  Receive Date: 20050901
  Receipt Date: 20050421
  Transmission Date: 20060218
  Serious: Yes (Other)
  Sender: FDA-Public Use
  Company Number: 18312

PATIENT
  Age: 70 Year
  Sex: Male
  Weight: 80.2867 kg

DRUGS (5)
  1. PACLITAXEL [Suspect]
     Indication: LUNG NEOPLASM MALIGNANT
     Dosage: 50MG/M2/IV/OVER 2 HOURS; WITHIN THE LAST 2 WEEKS
  2. O2 [Concomitant]
  3. BENADRYL [Concomitant]
  4. DEMEROL [Concomitant]
  5. SOLU-MEDROL [Concomitant]

REACTIONS (2)
  - CHEST PAIN [None]
  - DYSPNOEA [None]
